FAERS Safety Report 6212241-1 (Version None)
Quarter: 2009Q2

REPORT INFORMATION
  Report Type: 
  Country: None (occurrence: None)
  Receive Date: 20090529
  Receipt Date: 20090521
  Transmission Date: 20091009
  Serious: Yes (Life-Threatening)
  Sender: FDA-Public Use
  Company Number: CERZ-1000641

PATIENT
  Age: 56 Year
  Sex: Female
  Weight: 65.6 kg

DRUGS (1)
  1. CEREZYME [Suspect]
     Indication: GAUCHER'S DISEASE
     Dosage: 30 U/KG, Q2W, INTRAVENOUS
     Route: 042
     Dates: start: 20051102

REACTIONS (1)
  - LUNG CANCER METASTATIC [None]
